FAERS Safety Report 10022987 (Version 1)
Quarter: 2014Q1

REPORT INFORMATION
  Report Type: Spontaneous
  Country: US (occurrence: US)
  Receive Date: 20140319
  Receipt Date: 20140319
  Transmission Date: 20141002
  Serious: No
  Sender: FDA-Public Use
  Company Number: US-TEVA-467975USA

PATIENT
  Sex: Female

DRUGS (1)
  1. QVAR [Suspect]
     Indication: ASTHMA PROPHYLAXIS

REACTIONS (3)
  - Irritability [Unknown]
  - Feeling abnormal [Unknown]
  - Adverse event [Unknown]
